FAERS Safety Report 4878612-0 (Version None)
Quarter: 2006Q1

REPORT INFORMATION
  Report Type: 
  Country: None (occurrence: None)
  Receive Date: 20060112
  Receipt Date: 20051229
  Transmission Date: 20060701
  Serious: Yes (Other)
  Sender: FDA-Public Use
  Company Number: PHBS2005BR19208

PATIENT
  Age: 82 Year
  Sex: Female

DRUGS (9)
  1. TOFRANIL [Suspect]
     Indication: DEPRESSION
     Dosage: 25 MG, QD
     Route: 048
     Dates: start: 20051228
  2. CLORANA [Concomitant]
     Dosage: 50 MG, QD
     Route: 048
  3. CAPTOPRIL [Concomitant]
     Dosage: 25 MG/D
     Route: 048
  4. DIGOXIN [Concomitant]
     Dosage: 0.125 MG, QD
     Route: 048
  5. ASPIRIN [Concomitant]
     Route: 048
  6. GINKGO BILOBA [Concomitant]
  7. CENTRUM [Concomitant]
  8. BENERVA [Concomitant]
  9. RANITIDINE [Concomitant]
     Dosage: 150 MG, BID
     Route: 048

REACTIONS (2)
  - ABNORMAL BEHAVIOUR [None]
  - DELIRIUM [None]
